FAERS Safety Report 8348214-2 (Version None)
Quarter: 2012Q2

REPORT INFORMATION
  Report Type: 
  Country: None (occurrence: None)
  Receive Date: 20120509
  Receipt Date: 20120426
  Transmission Date: 20120825
  Serious: Yes (Death, Hospitalization)
  Sender: FDA-Public Use
  Company Number: TR-MYLANLABS-2012S1008791

PATIENT
  Age: 66 Year
  Sex: Female

DRUGS (5)
  1. BEVACIZUMAB [Suspect]
     Indication: COLON CANCER STAGE III
     Dosage: 5 MG/KG (ADMINISTERED EVERY 15 DAYS, WITH TWO APPLICATIONS COUNTING AS ONE CYCLE)
     Route: 065
  2. IRINOTECAN HCL [Suspect]
     Indication: COLON CANCER STAGE III
     Dosage: 180 MG/M2
     Route: 065
  3. FLUOROURACIL [Suspect]
     Dosage: 2400 MG/M2, 48-HOUR INFUSION
     Route: 041
  4. LEUCOVORIN CALCIUM [Suspect]
     Indication: COLON CANCER STAGE III
     Dosage: 200 MG/M2
     Route: 065
  5. FLUOROURACIL [Suspect]
     Indication: COLON CANCER STAGE III
     Dosage: 400 MG/M2
     Route: 040

REACTIONS (2)
  - INTESTINAL PERFORATION [None]
  - FEBRILE NEUTROPENIA [None]
